FAERS Safety Report 9844598 (Version 1)
Quarter: 2014Q1

REPORT INFORMATION
  Report Type: Spontaneous
  Country: US (occurrence: None)
  Receive Date: 20140123
  Receipt Date: 20140123
  Transmission Date: 20141002
  Serious: Yes (Death)
  Sender: FDA-Public Use
  Company Number: 2133628

PATIENT
  Age: 35 Year
  Sex: Male

DRUGS (4)
  1. DIAZEPAM [Suspect]
     Route: 051
  2. HEROIN [Suspect]
  3. ALPRAZOLAM [Suspect]
  4. GABAPENTIN [Suspect]

REACTIONS (4)
  - Respiratory arrest [None]
  - Cardiac arrest [None]
  - Poisoning deliberate [None]
  - Self-medication [None]
